FAERS Safety Report 18036164 (Version 1)
Quarter: 2020Q3

REPORT INFORMATION
  Report Type: Spontaneous
  Country: US (occurrence: US)
  Receive Date: 20200717
  Receipt Date: 20200717
  Transmission Date: 20201103
  Serious: No
  Sender: FDA-Public Use
  Company Number: US-BEH-2020120072

PATIENT
  Age: 55 Year
  Sex: Female

DRUGS (13)
  1. HIZENTRA [Suspect]
     Active Substance: HUMAN IMMUNOGLOBULIN G
     Indication: HYPOGAMMAGLOBULINAEMIA
     Dosage: 70 MILLILITER, QW
     Route: 058
     Dates: start: 20200205
  2. HIZENTRA [Suspect]
     Active Substance: HUMAN IMMUNOGLOBULIN G
     Dosage: UNK
     Route: 058
  3. PREMARIN [Concomitant]
     Active Substance: ESTROGENS, CONJUGATED
  4. SIMVASTATIN. [Concomitant]
     Active Substance: SIMVASTATIN
  5. ONE A DAY [MINERALS NOS;VITAMINS NOS] [Concomitant]
  6. HIZENTRA [Suspect]
     Active Substance: HUMAN IMMUNOGLOBULIN G
     Dosage: UNK
     Route: 058
  7. AMILORIDE [Concomitant]
     Active Substance: AMILORIDE
  8. METHOTREXATE. [Concomitant]
     Active Substance: METHOTREXATE
  9. ZYRTEC [Concomitant]
     Active Substance: CETIRIZINE HYDROCHLORIDE
  10. CYMBALTA [Concomitant]
     Active Substance: DULOXETINE HYDROCHLORIDE
  11. RAYOS [Concomitant]
     Active Substance: PREDNISONE
  12. LEUCOVORIN CA [Concomitant]
     Active Substance: LEUCOVORIN CALCIUM
  13. LEVOTHYROXIN [Concomitant]
     Active Substance: LEVOTHYROXINE

REACTIONS (1)
  - Nausea [Not Recovered/Not Resolved]

NARRATIVE: CASE EVENT DATE: 20200713
